FAERS Safety Report 24855266 (Version 5)
Quarter: 2025Q1

REPORT INFORMATION
  Report Type: Report from Study
  Country: IN (occurrence: IN)
  Receive Date: 20250117
  Receipt Date: 20250329
  Transmission Date: 20250408
  Serious: Yes (Other)
  Sender: ROCHE
  Company Number: IN-ROCHE-10000175326

PATIENT
  Age: 38 Year
  Sex: Male
  Weight: 57.8 kg

DRUGS (1)
  1. TECENTRIQ [Suspect]
     Active Substance: ATEZOLIZUMAB
     Indication: Neuroendocrine carcinoma
     Route: 042
     Dates: start: 20240620

REACTIONS (23)
  - Metastasis [Unknown]
  - Off label use [Unknown]
  - Blood potassium decreased [Unknown]
  - Creatinine renal clearance increased [Unknown]
  - Carbon dioxide decreased [Unknown]
  - Aspartate aminotransferase increased [Unknown]
  - Haemoglobin decreased [Unknown]
  - Platelet count decreased [Unknown]
  - Alanine aminotransferase increased [Unknown]
  - Red blood cell count decreased [Unknown]
  - Red cell distribution width increased [Unknown]
  - Blood urea decreased [Unknown]
  - Magnetic resonance imaging thoracic abnormal [Unknown]
  - Hypermetabolism [Unknown]
  - Lymphadenopathy [Unknown]
  - Osteolysis [Unknown]
  - Nasal septum deviation [Unknown]
  - Paranasal sinus mucosal hypertrophy [Unknown]
  - Pain [Unknown]
  - Fatigue [Unknown]
  - Hypertension [Unknown]
  - Weight decreased [Unknown]
  - Brain oedema [Unknown]

NARRATIVE: CASE EVENT DATE: 20250123
